FAERS Safety Report 6102213-X (Version None)
Quarter: 2009Q1

REPORT INFORMATION
  Report Type: 
  Country: None (occurrence: None)
  Receive Date: 20090303
  Receipt Date: 20090303
  Transmission Date: 20090719
  Serious: Yes (Hospitalization)
  Sender: FDA-Public Use
  Company Number: None

PATIENT
  Age: 55 Year
  Sex: Female
  Weight: 77.1115 kg

DRUGS (2)
  1. AVELOX [Suspect]
     Indication: EAR INFECTION
     Dosage: 400MG ONCE DAILY PO
     Route: 048
     Dates: start: 20081231, end: 20090107
  2. AVELOX [Suspect]
     Indication: SINUSITIS
     Dosage: 400MG ONCE DAILY PO
     Route: 048
     Dates: start: 20081231, end: 20090107

REACTIONS (3)
  - BLOOD POTASSIUM DECREASED [None]
  - CLOSTRIDIUM DIFFICILE COLITIS [None]
  - IMPAIRED WORK ABILITY [None]
